FAERS Safety Report 5776944-5 (Version None)
Quarter: 2008Q2

REPORT INFORMATION
  Report Type: 
  Country: None (occurrence: None)
  Receive Date: 20080618
  Receipt Date: 20080610
  Transmission Date: 20081010
  Serious: Yes (Life-Threatening)
  Sender: FDA-Public Use
  Company Number: B0525293A

PATIENT
  Age: 42 Year
  Sex: Male

DRUGS (5)
  1. LAMICTAL [Suspect]
     Indication: BIPOLAR DISORDER
     Route: 048
  2. REMERON [Concomitant]
     Dosage: 30MG PER DAY
     Route: 048
  3. SEROQUEL [Concomitant]
  4. VOLTAREN [Concomitant]
     Dosage: 100MG PER DAY
  5. LORAZEPAM [Concomitant]

REACTIONS (2)
  - INTENTIONAL OVERDOSE [None]
  - SUICIDE ATTEMPT [None]
